FAERS Safety Report 14849848 (Version 2)
Quarter: 2020Q1

REPORT INFORMATION
  Report Type: Spontaneous
  Country: US (occurrence: US)
  Receive Date: 20180504
  Receipt Date: 20200131
  Transmission Date: 20200409
  Serious: Yes (Hospitalization)
  Sender: FDA-Public Use
  Company Number: US-ACTELION-A-NJ2018-171600

PATIENT
  Sex: Female
  Weight: 108.84 kg

DRUGS (1)
  1. VENTAVIS [Suspect]
     Active Substance: ILOPROST
     Indication: PULMONARY ARTERIAL HYPERTENSION
     Dosage: 5 MCG, 6-9 TIMES PER DAY
     Route: 055

REACTIONS (4)
  - Blood potassium increased [Unknown]
  - Renal disorder [Unknown]
  - Vomiting [Unknown]
  - Dyspnoea [Unknown]
